FAERS Safety Report 12694735 (Version 1)
Quarter: 2016Q3

REPORT INFORMATION
  Report Type: Spontaneous
  Country: US (occurrence: US)
  Receive Date: 20160829
  Receipt Date: 20160829
  Transmission Date: 20161109
  Serious: Yes (Other)
  Sender: FDA-Public Use
  Company Number: US-TEVA-687732USA

PATIENT
  Age: 55 Year
  Sex: Female

DRUGS (24)
  1. DURAGESIC [Concomitant]
     Active Substance: FENTANYL
     Route: 065
  2. VITAMIN D [Concomitant]
     Active Substance: CHOLECALCIFEROL
     Route: 065
  3. PAXIL [Concomitant]
     Active Substance: PAROXETINE HYDROCHLORIDE
     Route: 065
  4. DYAZIDE [Concomitant]
     Active Substance: HYDROCHLOROTHIAZIDE\TRIAMTERENE
     Route: 065
  5. METHOTREXATE. [Concomitant]
     Active Substance: METHOTREXATE
     Route: 065
  6. NIASPAN [Concomitant]
     Active Substance: NIACIN
     Route: 065
  7. COPAXONE [Suspect]
     Active Substance: GLATIRAMER ACETATE
     Indication: MULTIPLE SCLEROSIS
     Route: 058
  8. FISH OIL [Concomitant]
     Active Substance: FISH OIL
     Route: 065
  9. EFFEXOR [Concomitant]
     Active Substance: VENLAFAXINE HYDROCHLORIDE
     Route: 065
  10. PRILOSEC [Concomitant]
     Active Substance: OMEPRAZOLE MAGNESIUM
     Route: 065
  11. ASA [Concomitant]
     Active Substance: ASPIRIN
     Route: 065
  12. ZOCOR [Concomitant]
     Active Substance: SIMVASTATIN
     Route: 065
  13. SYNTHROID [Concomitant]
     Active Substance: LEVOTHYROXINE SODIUM
     Route: 065
  14. FOLIC ACID. [Concomitant]
     Active Substance: FOLIC ACID
     Route: 065
  15. K-TAB [Concomitant]
     Active Substance: POTASSIUM CHLORIDE
     Route: 065
  16. XANAX [Concomitant]
     Active Substance: ALPRAZOLAM
     Route: 065
  17. GARCINIA CAMBOGIA COMP [Concomitant]
     Active Substance: DIETARY SUPPLEMENT
     Route: 065
  18. HYDROCODONE BITARTRATE AND ACETAMINOPHEN [Concomitant]
     Active Substance: ACETAMINOPHEN\HYDROCODONE BITARTRATE
     Route: 065
  19. PRAVASTATIN. [Concomitant]
     Active Substance: PRAVASTATIN
     Route: 065
  20. ZOLOFT [Concomitant]
     Active Substance: SERTRALINE HYDROCHLORIDE
     Route: 065
  21. PROTONIX [Concomitant]
     Active Substance: PANTOPRAZOLE SODIUM
     Route: 065
  22. ACCOLATE [Concomitant]
     Active Substance: ZAFIRLUKAST
     Route: 065
  23. CUBICIN [Concomitant]
     Active Substance: DAPTOMYCIN
     Route: 065
  24. LASIX [Concomitant]
     Active Substance: FUROSEMIDE
     Route: 065

REACTIONS (1)
  - Optic neuritis [Unknown]

NARRATIVE: CASE EVENT DATE: 201607
